FAERS Safety Report 16823442 (Version 1)
Quarter: 2019Q3

REPORT INFORMATION
  Report Type: Report from Study
  Country: DE (occurrence: DE)
  Receive Date: 20190918
  Receipt Date: 20190918
  Transmission Date: 20191005
  Serious: Yes (Death, Life-Threatening, Hospitalization)
  Sender: FDA-Public Use
  Company Number: DE-RECRO GAINESVILLE LLC-REPH-2019-000187

PATIENT

DRUGS (1)
  1. VERAPAMIL HYDROCHLORIDE SUSTAINED RELEASE [Suspect]
     Active Substance: VERAPAMIL HYDROCHLORIDE
     Dosage: 2.4 GRAM, ONE TIME DOSE
     Route: 048

REACTIONS (4)
  - Intentional overdose [Not Recovered/Not Resolved]
  - Cardiogenic shock [Not Recovered/Not Resolved]
  - Multiple organ dysfunction syndrome [Fatal]
  - Bradycardia [Not Recovered/Not Resolved]
